FAERS Safety Report 8093245-3 (Version None)
Quarter: 2012Q1

REPORT INFORMATION
  Report Type: 
  Country: None (occurrence: None)
  Receive Date: 20120128
  Receipt Date: 20110914
  Transmission Date: 20120608
  Serious: No
  Sender: FDA-Public Use
  Company Number: US-ABBOTT-11P-163-0726266-00

PATIENT
  Sex: Female
  Weight: 83.99 kg

DRUGS (8)
  1. IBUPROFEN [Concomitant]
     Indication: PAIN
  2. UNKNOWN MEDICATION [Concomitant]
     Indication: ARTHRALGIA
  3. UNKNOWN MEDICATION [Concomitant]
     Indication: FEELING OF RELAXATION
  4. UNKNOWN MEDICATION [Concomitant]
     Indication: FLUID RETENTION
  5. MYCOPHENOLATE MOFETIL [Concomitant]
     Indication: RHEUMATOID ARTHRITIS
  6. HUMIRA [Suspect]
     Indication: RHEUMATOID ARTHRITIS
     Dates: start: 20090101, end: 20110101
  7. HUMIRA [Suspect]
     Dates: start: 20110101
  8. CYMBALTA [Concomitant]
     Indication: DEPRESSION

REACTIONS (13)
  - PYREXIA [None]
  - DRUG INEFFECTIVE [None]
  - PRURITUS [None]
  - ERYTHEMA [None]
  - INFECTION [None]
  - INFLUENZA [None]
  - COUGH [None]
  - HAEMORRHAGE [None]
  - HYPERAESTHESIA [None]
  - APHONIA [None]
  - SCRATCH [None]
  - RASH PAPULAR [None]
  - WOUND SECRETION [None]
